FAERS Safety Report 21327363 (Version 1)
Quarter: 2022Q3

REPORT INFORMATION
  Report Type: Report from Study
  Country: US (occurrence: US)
  Receive Date: 20220913
  Receipt Date: 20220913
  Transmission Date: 20221027
  Serious: Yes (Death)
  Sender: FDA-Public Use
  Company Number: US-ADC THERAPEUTICS-ADC-2022-000180

PATIENT
  Age: 71 Year
  Sex: Male
  Weight: 103.4 kg

DRUGS (1)
  1. ZYNLONTA [Suspect]
     Active Substance: LONCASTUXIMAB TESIRINE-LPYL
     Indication: Diffuse large B-cell lymphoma
     Dosage: 15.5 MILLIGRAM, Q3WK
     Route: 042
     Dates: start: 20220708, end: 20220729

REACTIONS (1)
  - Death [Fatal]

NARRATIVE: CASE EVENT DATE: 20220819
